FAERS Safety Report 23345103 (Version 1)
Quarter: 2023Q4

REPORT INFORMATION
  Report Type: Report from Study
  Country: EG (occurrence: EG)
  Receive Date: 20231228
  Receipt Date: 20231228
  Transmission Date: 20240109
  Serious: Yes (Other)
  Sender: FDA-Public Use
  Company Number: EG-002147023-NVSC2023EG274222

PATIENT
  Age: 35 Year
  Sex: Male

DRUGS (3)
  1. GILENYA [Suspect]
     Active Substance: FINGOLIMOD HYDROCHLORIDE
     Indication: Multiple sclerosis
     Dosage: 1 DOSAGE FORM, QD (A YEAR AGO UPON PATIENT^S WORDS)
     Route: 048
  2. VITAMIN B12 [Concomitant]
     Active Substance: CYANOCOBALAMIN
     Indication: Vitamin B12
     Dosage: 1 CAPSULE DAILY (A YEAR AGO - ONGOING (BUT HE IS NON  COMPLIANT ON THEM)
     Route: 065
     Dates: start: 2022
  3. OMEGA-3 ACIDS [Concomitant]
     Active Substance: OMEGA-3 FATTY ACIDS
     Indication: Vitamin supplementation
     Dosage: 1OR 2 CAPSULES DAILY A YEAR AGO - ONGOING (BUT HE IS NON  COMPLIANT ON THEM)
     Route: 065
     Dates: start: 2022

REACTIONS (3)
  - Optic nerve injury [Recovering/Resolving]
  - Drug dependence [Unknown]
  - Drug ineffective [Unknown]

NARRATIVE: CASE EVENT DATE: 20231001
